FAERS Safety Report 4893372-5 (Version None)
Quarter: 2006Q1

REPORT INFORMATION
  Report Type: 
  Country: None (occurrence: None)
  Receive Date: 20060124
  Receipt Date: 20060111
  Transmission Date: 20060701
  Serious: Yes (Hospitalization)
  Sender: FDA-Public Use
  Company Number: 2005PV006248

PATIENT
  Age: 76 Year
  Sex: Female

DRUGS (15)
  1. BYETTA [Suspect]
     Indication: DIABETES MELLITUS NON-INSULIN-DEPENDENT
     Dosage: SEE IMAGE
     Route: 058
     Dates: start: 20050601, end: 20050701
  2. BYETTA [Suspect]
     Indication: DIABETES MELLITUS NON-INSULIN-DEPENDENT
     Dosage: SEE IMAGE
     Route: 058
     Dates: start: 20050701, end: 20051116
  3. BYETTA [Suspect]
     Indication: DIABETES MELLITUS NON-INSULIN-DEPENDENT
     Dosage: SEE IMAGE
     Route: 058
     Dates: start: 20051118
  4. AMARYL [Suspect]
     Dosage: SEE IMAGE
     Route: 048
     Dates: start: 20050101, end: 20051115
  5. AMARYL [Suspect]
     Dosage: SEE IMAGE
     Route: 048
     Dates: start: 20051116, end: 20051117
  6. AMARYL [Suspect]
     Dosage: SEE IMAGE
     Route: 048
     Dates: start: 20051118
  7. ACTOS [Suspect]
     Indication: DIABETES MELLITUS NON-INSULIN-DEPENDENT
     Dosage: SEE IMAGE
     Route: 048
     Dates: start: 20050601, end: 20051117
  8. ACTOS [Suspect]
     Indication: DIABETES MELLITUS NON-INSULIN-DEPENDENT
     Dosage: SEE IMAGE
     Route: 048
     Dates: start: 20051118
  9. GLUCOPHAGE [Concomitant]
  10. LIPITOR [Concomitant]
  11. COREG [Concomitant]
  12. LISINOPRIL AND HYDROCHLOROTHIAZIDE [Concomitant]
  13. LEVOTHROID [Concomitant]
  14. ZOLOFT [Concomitant]
  15. ASPIRIN [Concomitant]

REACTIONS (17)
  - ANAEMIA [None]
  - BLOOD GLUCOSE INCREASED [None]
  - CARDIAC MURMUR [None]
  - CEREBRAL ATROPHY [None]
  - CEREBRAL CYST [None]
  - CEREBRAL VENTRICLE DILATATION [None]
  - EATING DISORDER [None]
  - GLYCOSYLATED HAEMOGLOBIN INCREASED [None]
  - GOITRE [None]
  - HAEMATOMA [None]
  - HYDROCEPHALUS [None]
  - HYPOGLYCAEMIA [None]
  - LOSS OF CONSCIOUSNESS [None]
  - NAUSEA [None]
  - NEUROGLYCOPENIA [None]
  - PURPURA [None]
  - WEIGHT DECREASED [None]
